FAERS Safety Report 23006144 (Version 2)
Quarter: 2023Q4

REPORT INFORMATION
  Report Type: Spontaneous
  Country: GB (occurrence: GB)
  Receive Date: 20230929
  Receipt Date: 20231009
  Transmission Date: 20240109
  Serious: Yes (Life-Threatening, Hospitalization, Other)
  Sender: FDA-Public Use
  Company Number: GB-HALEON-GBCH2023HLN045612

PATIENT

DRUGS (3)
  1. SCOPOLAMINE HYDROBROMIDE [Suspect]
     Active Substance: SCOPOLAMINE HYDROBROMIDE
     Indication: Dysphagia
     Dosage: UNK, ONE FULL PATCH PER THREE DAYS
     Route: 065
     Dates: start: 20170118
  2. SCOPOLAMINE HYDROBROMIDE [Suspect]
     Active Substance: SCOPOLAMINE HYDROBROMIDE
     Indication: Salivary hypersecretion
  3. SCOPOLAMINE HYDROBROMIDE [Suspect]
     Active Substance: SCOPOLAMINE HYDROBROMIDE
     Indication: Respiratory disorder prophylaxis

REACTIONS (10)
  - Pneumonia aspiration [Unknown]
  - Clavicle fracture [Unknown]
  - Disorganised speech [Recovered/Resolved]
  - Fall [Unknown]
  - Drug intolerance [Unknown]
  - Off label use [Unknown]
  - Product supply issue [Unknown]
  - Pain [Unknown]
  - Crying [Unknown]
  - Amnesia [Unknown]

NARRATIVE: CASE EVENT DATE: 20170101
